FAERS Safety Report 15567654 (Version 2)
Quarter: 2018Q4

REPORT INFORMATION
  Report Type: Report from Study
  Country: US (occurrence: US)
  Receive Date: 20181030
  Receipt Date: 20181217
  Transmission Date: 20190205
  Serious: Yes (Hospitalization, Other)
  Sender: FDA-Public Use
  Company Number: US-TESARO, INC-US-2018TSO03122

PATIENT
  Age: 67 Year
  Sex: Female

DRUGS (2)
  1. ZEJULA [Suspect]
     Active Substance: NIRAPARIB
     Dosage: 200 MG, QD IN PM TAKEN WITH FOOD
     Route: 048
     Dates: start: 20181120
  2. ZEJULA [Suspect]
     Active Substance: NIRAPARIB
     Indication: OVARIAN CANCER
     Dosage: 200 MG, QPM
     Route: 048
     Dates: start: 20180605, end: 20181110

REACTIONS (11)
  - Intestinal obstruction [Unknown]
  - Intentional underdose [Not Recovered/Not Resolved]
  - Renal injury [Unknown]
  - Hypertension [Recovering/Resolving]
  - Vomiting [Recovered/Resolved]
  - Fatigue [Not Recovered/Not Resolved]
  - Insomnia [Not Recovered/Not Resolved]
  - Blood creatinine increased [Not Recovered/Not Resolved]
  - Nausea [Recovered/Resolved]
  - Decreased appetite [Unknown]
  - Constipation [Unknown]

NARRATIVE: CASE EVENT DATE: 201806
